FAERS Safety Report 7110008-3 (Version None)
Quarter: 2010Q4

REPORT INFORMATION
  Report Type: 
  Country: None (occurrence: None)
  Receive Date: 20101118
  Receipt Date: 20101112
  Transmission Date: 20110411
  Serious: Yes (Hospitalization)
  Sender: FDA-Public Use
  Company Number: US-EISAI INC.-E2090-01393-SPO-US

PATIENT
  Age: 38 Year
  Sex: Female

DRUGS (1)
  1. ZONEGRAN [Suspect]
     Route: 048
     Dates: start: 20031201

REACTIONS (1)
  - NEPHROLITHIASIS [None]
